FAERS Safety Report 20305508 (Version 2)
Quarter: 2022Q1

REPORT INFORMATION
  Report Type: Spontaneous
  Country: IT (occurrence: IT)
  Receive Date: 20220106
  Receipt Date: 20220121
  Transmission Date: 20220423
  Serious: Yes (Other)
  Sender: FDA-Public Use
  Company Number: IT-TEVA-2021-IT-1995609

PATIENT
  Age: 38 Year
  Sex: Male

DRUGS (3)
  1. PREDNISONE [Suspect]
     Active Substance: PREDNISONE
     Indication: Gastroenteritis eosinophilic
     Dosage: 50 MILLIGRAM DAILY;
     Route: 048
     Dates: end: 201904
  2. PREDNISONE [Suspect]
     Active Substance: PREDNISONE
     Indication: Asthma
     Dosage: 7.5 MILLIGRAM DAILY;
     Route: 048
     Dates: end: 202005
  3. PREDNISONE [Suspect]
     Active Substance: PREDNISONE
     Indication: Sinusitis

REACTIONS (4)
  - Drug dependence [Unknown]
  - Drug withdrawal syndrome [Unknown]
  - Eosinophilia [Recovering/Resolving]
  - Gastroenteritis [Recovering/Resolving]
